FAERS Safety Report 6446010-4 (Version None)
Quarter: 2009Q4

REPORT INFORMATION
  Report Type: 
  Country: None (occurrence: None)
  Receive Date: 20091119
  Receipt Date: 20090724
  Transmission Date: 20100525
  Serious: No
  Sender: FDA-Public Use
  Company Number: A0798609A

PATIENT
  Age: 30 Year
  Sex: Male

DRUGS (3)
  1. WELLBUTRIN SR [Suspect]
     Dosage: 150MG FOUR TIMES PER DAY
     Route: 048
     Dates: start: 20090601
  2. DEXTROAMPHETAMINE [Concomitant]
  3. RISPERDAL [Concomitant]

REACTIONS (2)
  - ACCIDENTAL OVERDOSE [None]
  - DEPRESSION [None]
